FAERS Safety Report 9455729 (Version 1)
Quarter: 2013Q3

REPORT INFORMATION
  Report Type: Spontaneous
  Country: DE (occurrence: DE)
  Receive Date: 20130813
  Receipt Date: 20130813
  Transmission Date: 20140515
  Serious: Yes (Life-Threatening, Hospitalization)
  Sender: FDA-Public Use
  Company Number: DE-ROCHE-1261233

PATIENT
  Age: 54 Year
  Sex: Male
  Weight: 78 kg

DRUGS (3)
  1. XELODA [Suspect]
     Indication: GASTRIC CANCER
     Route: 048
     Dates: start: 20130426
  2. EPIRUBICIN [Concomitant]
     Indication: GASTRIC CANCER
     Route: 042
     Dates: start: 20130426
  3. OXALIPLATIN [Concomitant]
     Indication: GASTRIC CANCER
     Route: 042
     Dates: start: 20130426

REACTIONS (1)
  - Ventricular fibrillation [Recovered/Resolved]
